FAERS Safety Report 10162638 (Version 1)
Quarter: 2014Q2

REPORT INFORMATION
  Report Type: Spontaneous
  Country: US (occurrence: US)
  Receive Date: 20140509
  Receipt Date: 20140509
  Transmission Date: 20141212
  Serious: No
  Sender: FDA-Public Use
  Company Number: US-PFIZER INC-2014127401

PATIENT
  Age: 22 Year
  Sex: Male
  Weight: 91.61 kg

DRUGS (1)
  1. QUILLIVANT XR [Suspect]
     Indication: ATTENTION DEFICIT/HYPERACTIVITY DISORDER
     Dosage: 20 MG, DAILY
     Dates: start: 20140415

REACTIONS (1)
  - Drug screen false positive [Unknown]
